FAERS Safety Report 4615408-9 (Version None)
Quarter: 2005Q1

REPORT INFORMATION
  Report Type: 
  Country: None (occurrence: None)
  Receive Date: 20050317
  Receipt Date: 20050309
  Transmission Date: 20050727
  Serious: Yes (Other)
  Sender: FDA-Public Use
  Company Number: 500270412/AKO-4710-AE

PATIENT
  Age: 43 Year
  Sex: Female

DRUGS (1)
  1. PAREMYD [Suspect]
     Dosage: 1 DROP/EYE, ONCE, TOPICAL
     Route: 061
     Dates: start: 20050116

REACTIONS (1)
  - UNEVALUABLE EVENT [None]
